FAERS Safety Report 5765558-9 (Version None)
Quarter: 2008Q2

REPORT INFORMATION
  Report Type: 
  Country: None (occurrence: None)
  Receive Date: 20080611
  Receipt Date: 20080609
  Transmission Date: 20081010
  Serious: Yes (Hospitalization)
  Sender: FDA-Public Use
  Company Number: FR-BRISTOL-MYERS SQUIBB COMPANY-14181267

PATIENT
  Age: 41 Year
  Sex: Male

DRUGS (4)
  1. REYATAZ [Suspect]
     Dosage: 2 DOSAGE FORM = 2 TABS/DAY IN ONE INTAKE.
     Dates: start: 20030615, end: 20080402
  2. VIREAD [Suspect]
     Indication: HIV INFECTION
     Route: 048
     Dates: start: 20030615, end: 20080402
  3. ZIAGEN [Suspect]
     Indication: HIV INFECTION
     Route: 048
     Dates: start: 20030615, end: 20080402
  4. NORVIR [Suspect]
     Indication: HIV INFECTION
     Route: 048
     Dates: start: 20030615, end: 20080402

REACTIONS (2)
  - NEPHROLITHIASIS [None]
  - RENAL FAILURE [None]
